FAERS Safety Report 5279596-6 (Version None)
Quarter: 2007Q1

REPORT INFORMATION
  Report Type: 
  Country: None (occurrence: None)
  Receive Date: 20070328
  Receipt Date: 20070316
  Transmission Date: 20070707
  Serious: Yes (Other)
  Sender: FDA-Public Use
  Company Number: CA-PFIZER INC-2007022350

PATIENT
  Age: 51 Year
  Sex: Female

DRUGS (4)
  1. NEURONTIN [Suspect]
     Indication: ANXIETY
     Route: 048
     Dates: start: 20040804, end: 20070301
  2. SERTRALINE [Concomitant]
     Route: 048
  3. IMOVANE [Concomitant]
     Route: 048
  4. CLONAZEPAM [Concomitant]
     Route: 048

REACTIONS (1)
  - PARKINSON'S DISEASE [None]
